FAERS Safety Report 9433263 (Version 2)
Quarter: 2013Q3

REPORT INFORMATION
  Report Type: Spontaneous
  Country: JP (occurrence: JP)
  Receive Date: 20130731
  Receipt Date: 20130812
  Transmission Date: 20140515
  Serious: Yes (Hospitalization)
  Sender: FDA-Public Use
  Company Number: JP-VIIV HEALTHCARE LIMITED-B0911086A

PATIENT
  Age: 57 Year
  Sex: Male

DRUGS (8)
  1. EPIVIR [Suspect]
     Indication: HIV INFECTION
     Route: 048
  2. ZIAGEN [Suspect]
     Indication: HIV INFECTION
     Route: 048
  3. RETROVIR [Suspect]
     Indication: HIV INFECTION
     Route: 048
  4. REYATAZ [Suspect]
     Indication: HIV INFECTION
     Route: 048
  5. EMTRIVA [Suspect]
     Indication: HIV INFECTION
     Route: 048
  6. ISENTRESS [Suspect]
     Indication: HIV INFECTION
     Route: 048
  7. PREZISTA [Suspect]
     Indication: HIV INFECTION
     Route: 048
  8. NORVIR [Suspect]
     Indication: HIV INFECTION
     Route: 048

REACTIONS (6)
  - AIDS dementia complex [Recovering/Resolving]
  - Cognitive disorder [Recovering/Resolving]
  - Personality change [Recovering/Resolving]
  - Dysarthria [Recovering/Resolving]
  - White matter lesion [Recovering/Resolving]
  - Drug resistance [Unknown]
